FAERS Safety Report 13640212 (Version 3)
Quarter: 2018Q1

REPORT INFORMATION
  Report Type: Spontaneous
  Country: JP (occurrence: JP)
  Receive Date: 20170609
  Receipt Date: 20180105
  Transmission Date: 20180508
  Serious: Yes (Death, Other)
  Sender: FDA-Public Use
  Company Number: JP-AMGEN-JPNSP2017088608

PATIENT
  Age: 57 Year
  Sex: Male
  Weight: 79 kg

DRUGS (7)
  1. DOCETAXEL. [Suspect]
     Active Substance: DOCETAXEL
     Dosage: 114 MG, UNK
     Route: 041
     Dates: start: 20170328, end: 20170328
  2. DOCETAXEL. [Suspect]
     Active Substance: DOCETAXEL
     Indication: LUNG ADENOCARCINOMA
     Dosage: 114 MG, UNK
     Route: 041
     Dates: start: 20170131, end: 20170131
  3. CYRAMZA [Suspect]
     Active Substance: RAMUCIRUMAB
     Dosage: 786 MG, UNK
     Route: 041
  4. CYRAMZA [Suspect]
     Active Substance: RAMUCIRUMAB
     Dosage: 786 MG, UNK
     Route: 041
     Dates: start: 20170328, end: 20170328
  5. G-LASTA [Suspect]
     Active Substance: PEGFILGRASTIM
     Indication: COLONY STIMULATING FACTOR PROPHYLAXIS
     Dosage: 3.6 MG, UNK
     Route: 058
     Dates: start: 20170331, end: 20170331
  6. CYRAMZA [Suspect]
     Active Substance: RAMUCIRUMAB
     Indication: LUNG ADENOCARCINOMA
     Dosage: 786 MG, UNK
     Route: 041
     Dates: start: 20170131, end: 20170131
  7. DOCETAXEL. [Suspect]
     Active Substance: DOCETAXEL
     Dosage: 114 MG, UNK
     Route: 041

REACTIONS (2)
  - Pneumonia [Fatal]
  - Febrile neutropenia [Fatal]

NARRATIVE: CASE EVENT DATE: 20170404
